FAERS Safety Report 23560589 (Version 1)
Quarter: 2024Q1

REPORT INFORMATION
  Report Type: Spontaneous
  Country: US (occurrence: US)
  Receive Date: 20240223
  Receipt Date: 20240223
  Transmission Date: 20240409
  Serious: Yes (Other)
  Sender: FDA-Public Use
  Company Number: US-NOVOPROD-1174041

PATIENT
  Sex: Female

DRUGS (1)
  1. LEVEMIR [Suspect]
     Active Substance: INSULIN DETEMIR
     Indication: Diabetes mellitus
     Dosage: 30-40 CC, DEPENDING ON INSULIN LEVEL
     Route: 058
     Dates: start: 20230727

REACTIONS (1)
  - Neoplasm malignant [Not Recovered/Not Resolved]
